FAERS Safety Report 4692885-9 (Version None)
Quarter: 2005Q2

REPORT INFORMATION
  Report Type: 
  Country: None (occurrence: None)
  Receive Date: 20050615
  Receipt Date: 20050602
  Transmission Date: 20051028
  Serious: Yes (Hospitalization, Other)
  Sender: FDA-Public Use
  Company Number: 2005084007

PATIENT
  Age: 42 Year
  Sex: Female

DRUGS (6)
  1. ATARAX [Suspect]
     Indication: AGITATION
     Dosage: 150 MG, ORAL
     Route: 048
  2. KEPPRA [Suspect]
     Indication: EPILEPSY
     Dosage: 3000 MG, ORAL
     Route: 048
  3. LIVOTRIL (CLONAZEPAM) [Concomitant]
  4. ZYPREXA [Concomitant]
  5. GARDENAL SODIUM (PHENOBARBITAL SODIUM) [Concomitant]
  6. DI-HYDAN (PHENYTOIN) [Concomitant]

REACTIONS (1)
  - CONVULSION [None]
